FAERS Safety Report 17339857 (Version 5)
Quarter: 2020Q1

REPORT INFORMATION
  Report Type: Report from Study
  Country: US (occurrence: US)
  Receive Date: 20200129
  Receipt Date: 20200317
  Transmission Date: 20200409
  Serious: Yes (Hospitalization)
  Sender: FDA-Public Use
  Company Number: US-PUMA BIOTECHNOLOGY, LTD.-2019US007599

PATIENT

DRUGS (3)
  1. NERLYNX [Suspect]
     Active Substance: NERATINIB
     Indication: BREAST CANCER FEMALE
     Dosage: 240 MG (6 TABLETS), DAILY
     Route: 048
     Dates: start: 20190627, end: 2019
  2. CAPECITABINE. [Concomitant]
     Active Substance: CAPECITABINE
     Indication: PRODUCT USED FOR UNKNOWN INDICATION
     Dosage: 1000 MG, BID FOR 14 OF 21 DAYS
  3. NERLYNX [Suspect]
     Active Substance: NERATINIB
     Dosage: 200 MG (5 TABLETS), DAILY
     Route: 048
     Dates: start: 2019, end: 2020

REACTIONS (7)
  - Gastrointestinal infection [Unknown]
  - Adverse drug reaction [Unknown]
  - Product dose omission [Unknown]
  - Urinary tract infection [Unknown]
  - Dry skin [Unknown]
  - Off label use [Unknown]
  - Nail discolouration [Unknown]

NARRATIVE: CASE EVENT DATE: 2019
